FAERS Safety Report 5195521-0 (Version None)
Quarter: 2006Q4

REPORT INFORMATION
  Report Type: 
  Country: None (occurrence: None)
  Receive Date: 20061226
  Receipt Date: 20061226
  Transmission Date: 20070319
  Serious: Yes (Other)
  Sender: FDA-Public Use
  Company Number: None

PATIENT
  Age: 59 Year
  Sex: Male
  Weight: 86.1834 kg

DRUGS (1)
  1. CVS ES NON-ASPIRIN CAPLETS 500 MG DISTRIBUTED BY CVS [Suspect]
     Indication: MYALGIA
     Dosage: 1 OR 2 PILLS   ONCE, TWICE A DAY  PO
     Route: 048
     Dates: start: 20060815, end: 20061106

REACTIONS (2)
  - ABDOMINAL PAIN UPPER [None]
  - PHARMACEUTICAL PRODUCT COMPLAINT [None]
